FAERS Safety Report 16871590 (Version 1)
Quarter: 2019Q4

REPORT INFORMATION
  Report Type: Report from Study
  Country: IT (occurrence: IT)
  Receive Date: 20191001
  Receipt Date: 20191001
  Transmission Date: 20200122
  Serious: Yes (Hospitalization)
  Sender: FDA-Public Use
  Company Number: IT-TEVA-2019-IT-1114721

PATIENT
  Age: 59 Year
  Sex: Male

DRUGS (1)
  1. LORAZEPAM. [Suspect]
     Active Substance: LORAZEPAM
     Indication: DRUG ABUSE
     Route: 048
     Dates: start: 20190802, end: 20190802

REACTIONS (3)
  - Depression [Recovered/Resolved with Sequelae]
  - Intentional self-injury [Recovered/Resolved with Sequelae]
  - Sopor [Recovered/Resolved with Sequelae]

NARRATIVE: CASE EVENT DATE: 20190802
